FAERS Safety Report 14953607 (Version 2)
Quarter: 2018Q3

REPORT INFORMATION
  Report Type: Spontaneous
  Country: US (occurrence: US)
  Receive Date: 20180530
  Receipt Date: 20180727
  Transmission Date: 20181010
  Serious: Yes (Other)
  Sender: FDA-Public Use
  Company Number: US-ASTRAZENECA-2018SE68597

PATIENT
  Age: 66 Year
  Sex: Female
  Weight: 113.4 kg

DRUGS (2)
  1. BYETTA [Suspect]
     Active Substance: EXENATIDE
     Indication: TYPE 2 DIABETES MELLITUS
     Dosage: TWO TIMES A DAY
     Route: 065
     Dates: start: 2008, end: 2017
  2. BYDUREON BCISE [Suspect]
     Active Substance: EXENATIDE
     Indication: TYPE 2 DIABETES MELLITUS
     Route: 058
     Dates: start: 2018

REACTIONS (7)
  - Weight fluctuation [Unknown]
  - Bone cancer [Unknown]
  - Haematological malignancy [Unknown]
  - Clostridium difficile infection [Unknown]
  - Device malfunction [Unknown]
  - Weight decreased [Unknown]
  - Underdose [Unknown]

NARRATIVE: CASE EVENT DATE: 2013
